FAERS Safety Report 16459142 (Version 5)
Quarter: 2021Q2

REPORT INFORMATION
  Report Type: Report from Study
  Country: US (occurrence: US)
  Receive Date: 20190620
  Receipt Date: 20210517
  Transmission Date: 20210716
  Serious: Yes (Other)
  Sender: FDA-Public Use
  Company Number: US-TESAROUBC-2018-TSO1992-US

PATIENT
  Age: 62 Year
  Sex: Female

DRUGS (4)
  1. NIRAPARIB [Suspect]
     Active Substance: NIRAPARIB
     Dosage: 100 MG DAILY (1 CAPSULE)
     Route: 048
  2. NIRAPARIB [Suspect]
     Active Substance: NIRAPARIB
     Dosage: 200 MG, ONCE A DAY IN THE EVENING WITHOUT FOOD, 2 CAPSULES BY MOUTH ONCE DAILY
     Route: 048
     Dates: start: 20181128
  3. NIRAPARIB [Suspect]
     Active Substance: NIRAPARIB
     Indication: OVARIAN CANCER
     Dosage: 100 MG, QD
     Route: 048
     Dates: start: 20181118
  4. NIRAPARIB [Suspect]
     Active Substance: NIRAPARIB
     Dosage: 100 MG, QPM WITH FOOD
     Route: 048
     Dates: start: 201901

REACTIONS (17)
  - Pain [Not Recovered/Not Resolved]
  - Dehydration [Recovering/Resolving]
  - Dizziness [Unknown]
  - Vomiting [Not Recovered/Not Resolved]
  - Fatigue [Not Recovered/Not Resolved]
  - Pallor [Unknown]
  - Drug intolerance [Unknown]
  - Asthenia [Recovering/Resolving]
  - Illness [Recovering/Resolving]
  - Insomnia [Recovering/Resolving]
  - Cyst [Unknown]
  - Nausea [Not Recovered/Not Resolved]
  - Computerised tomogram abnormal [Unknown]
  - Surgery [Unknown]
  - Sunburn [Unknown]
  - Product dose omission issue [Unknown]
  - Neuropathy peripheral [Unknown]

NARRATIVE: CASE EVENT DATE: 201811
